FAERS Safety Report 7418292 (Version 42)
Quarter: 2015Q4

REPORT INFORMATION
  Report Type: Report from Study
  Country: CA (occurrence: CA)
  Receive Date: 20100614
  Receipt Date: 20151030
  Transmission Date: 20160305
  Serious: Yes (Other)
  Sender: FDA-Public Use
  Company Number: PHHY2009CA15416

PATIENT
  Age: 63 Year
  Sex: Female
  Weight: 57 kg

DRUGS (15)
  1. SANDOSTATIN LAR DEPOT [Suspect]
     Active Substance: OCTREOTIDE ACETATE
     Dosage: 30 MG, QMO
     Route: 030
  2. SANDOSTATIN LAR DEPOT [Suspect]
     Active Substance: OCTREOTIDE ACETATE
     Dosage: 20 MG, UNK
     Route: 030
     Dates: start: 20150820
  3. SANDOSTATIN [Suspect]
     Active Substance: OCTREOTIDE ACETATE
     Dosage: 0.75 ML, BID
     Route: 058
  4. SANDOSTATIN LAR DEPOT [Suspect]
     Active Substance: OCTREOTIDE ACETATE
     Dosage: 40 MG, QMO
     Route: 030
  5. EFFEXOR [Concomitant]
     Active Substance: VENLAFAXINE HYDROCHLORIDE
     Indication: PRODUCT USED FOR UNKNOWN INDICATION
     Route: 065
  6. SANDOSTATIN LAR DEPOT [Suspect]
     Active Substance: OCTREOTIDE ACETATE
     Indication: CARCINOID SYNDROME
     Dosage: 40 MG, QMO
     Route: 030
     Dates: start: 20070320
  7. SANDOSTATIN LAR DEPOT [Suspect]
     Active Substance: OCTREOTIDE ACETATE
     Dosage: 30 MG, QMO
     Route: 030
     Dates: start: 20120504
  8. SANDOSTATIN LAR DEPOT [Suspect]
     Active Substance: OCTREOTIDE ACETATE
     Dosage: 40 MG, QMO (ONCE A MONTH)
     Route: 030
  9. SANDOSTATIN [Suspect]
     Active Substance: OCTREOTIDE ACETATE
     Dosage: 200 UG, BID
     Route: 058
     Dates: start: 20150402
  10. SANDOSTATIN [Suspect]
     Active Substance: OCTREOTIDE ACETATE
     Dosage: 0.75 ML, TID PRN
     Route: 058
  11. SANDOSTATIN [Suspect]
     Active Substance: OCTREOTIDE ACETATE
     Dosage: 200 UG, QD
     Route: 058
  12. SANDOSTATIN [Suspect]
     Active Substance: OCTREOTIDE ACETATE
     Indication: CARCINOID SYNDROME
     Dosage: 7 UG, QD
     Route: 058
     Dates: start: 20081106
  13. SANDOSTATIN [Suspect]
     Active Substance: OCTREOTIDE ACETATE
     Dosage: 150 UG, TID (PRN)
     Route: 058
     Dates: start: 20110920
  14. SANDOSTATIN [Suspect]
     Active Substance: OCTREOTIDE ACETATE
     Dosage: 150 UG, TID
     Route: 058
  15. DOXYCYCLINE. [Concomitant]
     Active Substance: DOXYCYCLINE
     Indication: PRODUCT USED FOR UNKNOWN INDICATION
     Dosage: 100 MG, BID
     Route: 048

REACTIONS (58)
  - Fatigue [Unknown]
  - Visual impairment [Recovered/Resolved]
  - Thyroxine increased [Unknown]
  - Malaise [Unknown]
  - Vertigo [Recovered/Resolved]
  - Hyperglycaemia [Unknown]
  - Product quality issue [Unknown]
  - Blood pressure systolic increased [Unknown]
  - Bronchitis [Unknown]
  - Muscle spasms [Unknown]
  - Influenza like illness [Unknown]
  - Oropharyngeal pain [Unknown]
  - Chest pain [Not Recovered/Not Resolved]
  - Dizziness [Recovered/Resolved]
  - Weight increased [Unknown]
  - Abdominal distension [Not Recovered/Not Resolved]
  - Drug ineffective [Unknown]
  - Pyrexia [Unknown]
  - Lacrimation increased [Unknown]
  - Injection site discomfort [Unknown]
  - Nausea [Unknown]
  - Hot flush [Unknown]
  - Needle issue [Unknown]
  - Hepatic neoplasm [Unknown]
  - Flushing [Unknown]
  - Cough [Not Recovered/Not Resolved]
  - Weight decreased [Unknown]
  - Dry mouth [Unknown]
  - Nasal congestion [Unknown]
  - Hypertension [Unknown]
  - Headache [Unknown]
  - Abdominal pain upper [Unknown]
  - Incorrect route of drug administration [Unknown]
  - Mood swings [Unknown]
  - Pneumonia [Unknown]
  - Sputum discoloured [Unknown]
  - Feeling abnormal [Unknown]
  - Pallor [Unknown]
  - Heart rate irregular [Unknown]
  - Blood thyroid stimulating hormone increased [Unknown]
  - Diarrhoea [Not Recovered/Not Resolved]
  - Menopausal symptoms [Unknown]
  - Pain in extremity [Recovered/Resolved]
  - Injection site swelling [Unknown]
  - Injection site erythema [Recovered/Resolved]
  - Injection site reaction [Unknown]
  - Peripheral swelling [Unknown]
  - Accidental poisoning [Unknown]
  - Confusional state [Recovered/Resolved]
  - Underdose [Unknown]
  - Inflammation [Unknown]
  - Arthralgia [Unknown]
  - Injection site pain [Unknown]
  - Injection site mass [Unknown]
  - Injection site haemorrhage [Recovering/Resolving]
  - Heart rate decreased [Unknown]
  - Abdominal pain [Unknown]
  - Incorrect product storage [Unknown]

NARRATIVE: CASE EVENT DATE: 20140625
